FAERS Safety Report 6357155-1 (Version None)
Quarter: 2009Q3

REPORT INFORMATION
  Report Type: 
  Country: None (occurrence: None)
  Receive Date: 20090910
  Receipt Date: 20090831
  Transmission Date: 20100115
  Serious: Yes (Other)
  Sender: FDA-Public Use
  Company Number: M-09-0864

PATIENT
  Age: 54 Year
  Sex: Female
  Weight: 70.3075 kg

DRUGS (5)
  1. DIVALPROX SODIUM [Suspect]
     Dosage: 625 MG, TID
     Dates: start: 20090601
  2. DEPAKOTE [Suspect]
     Indication: CONVULSION
     Dosage: 500 MG, TID
     Dates: start: 20090101, end: 20090601
  3. DEPAKOTE [Suspect]
     Indication: CONVULSION
     Dosage: 375 MG, TID
     Dates: end: 20090101
  4. FOLOIC ACID [Concomitant]
  5. ACETYLSALICYLIC ACID [Concomitant]

REACTIONS (2)
  - CONVULSION [None]
  - PRODUCT SUBSTITUTION ISSUE [None]
